FAERS Safety Report 5318321-7 (Version None)
Quarter: 2007Q2

REPORT INFORMATION
  Report Type: 
  Country: None (occurrence: None)
  Receive Date: 20070507
  Receipt Date: 20070425
  Transmission Date: 20071010
  Serious: Yes (Life-Threatening, Hospitalization)
  Sender: FDA-Public Use
  Company Number: JP-SANOFI-SYNTHELABO-A01200704511

PATIENT
  Age: 33 Year

DRUGS (3)
  1. NORVASC [Suspect]
     Route: 048
     Dates: start: 20070423, end: 20070423
  2. NORVASC [Suspect]
     Route: 048
     Dates: start: 20070423, end: 20070423
  3. KERLONG [Suspect]
     Route: 048
     Dates: start: 20070423, end: 20070423

REACTIONS (2)
  - SHOCK [None]
  - SUICIDE ATTEMPT [None]
